FAERS Safety Report 20719547 (Version 2)
Quarter: 2022Q2

REPORT INFORMATION
  Report Type: Report from Study
  Country: BR (occurrence: BR)
  Receive Date: 20220418
  Receipt Date: 20220509
  Transmission Date: 20220721
  Serious: Yes (Death)
  Sender: FDA-Public Use
  Company Number: BR-NOVARTISPH-NVSC2022BR089412

PATIENT
  Age: 75 Year
  Sex: Male
  Weight: 54 kg

DRUGS (2)
  1. CAPMATINIB [Suspect]
     Active Substance: CAPMATINIB
     Indication: Non-small cell lung cancer
     Dosage: 200 MG (VIAL)
     Route: 065
  2. CAPMATINIB [Suspect]
     Active Substance: CAPMATINIB
     Dosage: 400 MG, QD
     Route: 048
     Dates: start: 20210609, end: 20211109

REACTIONS (4)
  - Death [Fatal]
  - Asthenia [Unknown]
  - Nausea [Unknown]
  - Decreased appetite [Unknown]

NARRATIVE: CASE EVENT DATE: 20211109
